FAERS Safety Report 4318557-8 (Version None)
Quarter: 2004Q1

REPORT INFORMATION
  Report Type: 
  Country: None (occurrence: None)
  Receive Date: 20040318
  Receipt Date: 20040217
  Transmission Date: 20041129
  Serious: Yes (Hospitalization, Other)
  Sender: FDA-Public Use
  Company Number: PHBS2004CH02297

PATIENT
  Age: 49 Year
  Sex: Female

DRUGS (7)
  1. AREDIA [Suspect]
     Indication: REFLEX SYMPATHETIC DYSTROPHY
     Dosage: 30 MG, ONCE/SINGLE
     Route: 042
     Dates: start: 20040107, end: 20040107
  2. AREDIA [Suspect]
     Dosage: 30 MG, ONCE/SINGLE
     Route: 042
     Dates: start: 20040115, end: 20040115
  3. GLUCOPHAGE [Concomitant]
     Indication: DIABETES MELLITUS
     Dosage: 1000 MG/D
     Route: 065
  4. KLIOGEST ^NOVO INDUSTRI^ [Concomitant]
     Indication: MENOPAUSAL DISORDER
     Route: 065
  5. STILNOX [Concomitant]
     Dosage: 10 MG/D
     Route: 065
  6. PANTOZOL [Concomitant]
     Dosage: 40 MG/D
     Route: 065
  7. PREDNISONE [Suspect]
     Route: 065
     Dates: start: 20040125

REACTIONS (8)
  - ALANINE AMINOTRANSFERASE INCREASED [None]
  - ASPARTATE AMINOTRANSFERASE INCREASED [None]
  - BLOOD CREATINE PHOSPHOKINASE INCREASED [None]
  - BLOOD LACTATE DEHYDROGENASE INCREASED [None]
  - EXANTHEM [None]
  - IMPAIRED HEALING [None]
  - MYALGIA [None]
  - MYOSITIS [None]
